FAERS Safety Report 18593888 (Version 3)
Quarter: 2021Q3

REPORT INFORMATION
  Report Type: Other
  Country: CA (occurrence: CA)
  Receive Date: 20201209
  Receipt Date: 20210802
  Transmission Date: 20211014
  Serious: Yes (Other)
  Sender: FDA-Public Use
  Company Number: CA-CELLTRION INC.-2020CA033181

PATIENT

DRUGS (34)
  1. DIPHENHYDRAMINE HYDROCHLORIDE. [Concomitant]
     Active Substance: DIPHENHYDRAMINE HYDROCHLORIDE
     Indication: PREMEDICATION
     Dosage: 50 MG
     Route: 048
  2. SULFATRIM [Concomitant]
     Active Substance: SULFAMETHOXAZOLE\TRIMETHOPRIM
  3. ACETAMINOPHEN. [Concomitant]
     Active Substance: ACETAMINOPHEN
     Indication: PREMEDICATION
     Dosage: 650.0 MILLIGRAM
     Route: 048
  4. METHYLPREDNISOLONE. [Concomitant]
     Active Substance: METHYLPREDNISOLONE
     Indication: PREMEDICATION
     Dosage: 100 MG
     Route: 042
  5. RISEDRONATE SODIUM. [Concomitant]
     Active Substance: RISEDRONATE SODIUM
     Dosage: 35.0 MILLIGRAM, 1 EVERY 1 WEEKS
     Route: 048
  6. CELLCEPT [Suspect]
     Active Substance: MYCOPHENOLATE MOFETIL\MYCOPHENOLATE MOFETIL HYDROCHLORIDE
     Indication: SCLERODERMA
     Dosage: 1.5 GRAM, 2 EVERY 1 DAY
     Route: 048
  7. CELLCEPT [Suspect]
     Active Substance: MYCOPHENOLATE MOFETIL\MYCOPHENOLATE MOFETIL HYDROCHLORIDE
     Indication: SCLERODERMA
     Dosage: UNK
     Route: 065
  8. CYCLOPHOSPHAMIDE. [Concomitant]
     Active Substance: CYCLOPHOSPHAMIDE
     Dosage: FREQUENCY: 1 EVERY 15 DAYS
     Route: 048
  9. SEPTRA [Concomitant]
     Active Substance: SULFAMETHOXAZOLE\TRIMETHOPRIM
     Route: 065
  10. TRENTAL [Concomitant]
     Active Substance: PENTOXIFYLLINE
     Dosage: 400 MG, 2 EVERY 1 DAY
     Route: 048
  11. RITUXIMAB (UNKNOWN) [Suspect]
     Active Substance: RITUXIMAB
     Indication: SCLERODERMA
     Dosage: 1000.0 MILLIGRAM
     Route: 042
  12. NIFEDIPINE XL [Concomitant]
     Active Substance: NIFEDIPINE
     Dosage: 20 MG
     Route: 065
  13. SUCRALFATE. [Concomitant]
     Active Substance: SUCRALFATE
     Dosage: 1 GRAM, 4 EVERY 1 DAY
     Route: 065
  14. SUCRALFATE. [Concomitant]
     Active Substance: SUCRALFATE
     Dosage: 1.0 GRAM, 1 EVERY 1 DAYS
     Route: 065
  15. CELLCEPT [Suspect]
     Active Substance: MYCOPHENOLATE MOFETIL\MYCOPHENOLATE MOFETIL HYDROCHLORIDE
     Indication: INTERSTITIAL LUNG DISEASE
  16. DOMPERIDONE [Concomitant]
     Active Substance: DOMPERIDONE
     Dosage: 10 MILLIGRAM, 1 EVERY 1 DAYS
     Route: 048
  17. RISEDRONATE [Concomitant]
     Active Substance: RISEDRONATE SODIUM
     Dosage: 35 MG, 1 EVERY 1 WEEK
     Route: 065
  18. DEXILANT [Concomitant]
     Active Substance: DEXLANSOPRAZOLE
     Dosage: 60 MG, 2 EVERY 1 DAYS
     Route: 065
  19. DIFLUCAN [Concomitant]
     Active Substance: FLUCONAZOLE
     Dosage: 100 MG, 1 EVERY 1 WEEK
     Route: 065
  20. DOMPERIDONE [Concomitant]
     Active Substance: DOMPERIDONE
     Dosage: 10 MG, 3 EVERY 1 DAYS
     Route: 065
  21. PENTOXIFYLLINE. [Concomitant]
     Active Substance: PENTOXIFYLLINE
     Dosage: 400 MG, 2 EVERY 1 DAY
     Route: 065
  22. PREDNISONE. [Concomitant]
     Active Substance: PREDNISONE
     Dosage: 5 MG, 1 EVERY 1 DAY
     Route: 065
  23. WARFARIN [Concomitant]
     Active Substance: WARFARIN
  24. NIFEDIPINE. [Concomitant]
     Active Substance: NIFEDIPINE
     Dosage: 20 MG, 1 EVERY 1 DAY
     Route: 065
  25. RITUXIMAB (UNKNOWN) [Suspect]
     Active Substance: RITUXIMAB
     Indication: INTERSTITIAL LUNG DISEASE
     Dosage: UNK
     Route: 042
  26. CELLCEPT [Suspect]
     Active Substance: MYCOPHENOLATE MOFETIL\MYCOPHENOLATE MOFETIL HYDROCHLORIDE
     Indication: INTERSTITIAL LUNG DISEASE
     Dosage: 1.0 GRAM, 2 EVERY 1 DAY
     Route: 048
  27. NINTEDANIB ESILATE [Suspect]
     Active Substance: NINTEDANIB ESYLATE
     Indication: PRODUCT USED FOR UNKNOWN INDICATION
     Dosage: 150 MILLIGRAM, 2 EVERY 1 DAYS
     Route: 065
  28. ACETAMINOPHEN. [Concomitant]
     Active Substance: ACETAMINOPHEN
     Indication: PREMEDICATION
     Dosage: 1000.0 MILLIGRAM
     Route: 048
  29. ASPIRIN. [Concomitant]
     Active Substance: ASPIRIN
     Dosage: 81 MG, 1 EVERY 1 DAYS
     Route: 065
  30. CIALIS [Concomitant]
     Active Substance: TADALAFIL
     Indication: RAYNAUD^S PHENOMENON
  31. METOCLOPRAMIDE HYDROCHLORIDE. [Concomitant]
     Active Substance: METOCLOPRAMIDE HYDROCHLORIDE
     Dosage: 10.0 MILLIGRAM, 3 EVERY 1 DAYS
     Route: 065
  32. NASONEX [Concomitant]
     Active Substance: MOMETASONE FUROATE
     Dosage: FREQUENCY: 2 EVERY 1 DAYS
     Route: 065
  33. NIFEDIPINE. [Concomitant]
     Active Substance: NIFEDIPINE
     Dosage: 20.0 MILLIGRAM,1 EVERY 1 DAYS
     Route: 048
  34. PROZAC [Concomitant]
     Active Substance: FLUOXETINE HYDROCHLORIDE
     Dosage: 20 NANOGRAM, 1 EVERY 2 DAYS
     Route: 065

REACTIONS (39)
  - Musculoskeletal chest pain [Not Recovered/Not Resolved]
  - Oesophageal ulcer [Not Recovered/Not Resolved]
  - Skin discolouration [Not Recovered/Not Resolved]
  - Skin tightness [Not Recovered/Not Resolved]
  - Skin ulcer [Not Recovered/Not Resolved]
  - Pneumonitis [Not Recovered/Not Resolved]
  - Pleuritic pain [Not Recovered/Not Resolved]
  - Right ventricular enlargement [Not Recovered/Not Resolved]
  - Sputum discoloured [Not Recovered/Not Resolved]
  - Cough [Not Recovered/Not Resolved]
  - Diarrhoea [Not Recovered/Not Resolved]
  - Fatigue [Not Recovered/Not Resolved]
  - Off label use [Unknown]
  - Blood pressure systolic increased [Not Recovered/Not Resolved]
  - Pulmonary function test decreased [Not Recovered/Not Resolved]
  - Nausea [Not Recovered/Not Resolved]
  - Oral candidiasis [Not Recovered/Not Resolved]
  - Pneumonia [Not Recovered/Not Resolved]
  - Telangiectasia [Not Recovered/Not Resolved]
  - Crepitations [Not Recovered/Not Resolved]
  - Dysphonia [Not Recovered/Not Resolved]
  - Oesophageal dilatation [Not Recovered/Not Resolved]
  - Dyspnoea [Not Recovered/Not Resolved]
  - Localised infection [Not Recovered/Not Resolved]
  - Vomiting [Not Recovered/Not Resolved]
  - Therapeutic response shortened [Not Recovered/Not Resolved]
  - Bronchiectasis [Not Recovered/Not Resolved]
  - Haematuria [Not Recovered/Not Resolved]
  - Gastrointestinal disorder [Not Recovered/Not Resolved]
  - Ill-defined disorder [Not Recovered/Not Resolved]
  - Raynaud^s phenomenon [Not Recovered/Not Resolved]
  - Upper-airway cough syndrome [Not Recovered/Not Resolved]
  - Epistaxis [Not Recovered/Not Resolved]
  - Treatment failure [Not Recovered/Not Resolved]
  - Diastolic dysfunction [Not Recovered/Not Resolved]
  - Osteoporosis [Not Recovered/Not Resolved]
  - Oxygen saturation decreased [Not Recovered/Not Resolved]
  - Rales [Not Recovered/Not Resolved]
  - Gastrooesophageal reflux disease [Not Recovered/Not Resolved]
